FAERS Safety Report 5110474-9 (Version None)
Quarter: 2006Q3

REPORT INFORMATION
  Report Type: 
  Country: None (occurrence: None)
  Receive Date: 20060731
  Receipt Date: 20060623
  Transmission Date: 20061208
  Serious: No
  Sender: FDA-Public Use
  Company Number: 2006PV016369

PATIENT
  Age: 57 Year
  Sex: Male
  Weight: 128.8216 kg

DRUGS (2)
  1. BYETTA [Suspect]
     Indication: DIABETES MELLITUS NON-INSULIN-DEPENDENT
     Dosage: 5 MCG; BID;SC
     Route: 058
     Dates: start: 20060617
  2. CHOLESTEROL MEDICATION [Concomitant]

REACTIONS (5)
  - DECREASED APPETITE [None]
  - LETHARGY [None]
  - NAUSEA [None]
  - THERAPEUTIC RESPONSE UNEXPECTED [None]
  - WEIGHT DECREASED [None]
